FAERS Safety Report 11321805 (Version 4)
Quarter: 2018Q2

REPORT INFORMATION
  Report Type: Spontaneous
  Country: JP (occurrence: JP)
  Receive Date: 20150729
  Receipt Date: 20180425
  Transmission Date: 20180711
  Serious: Yes (Other)
  Sender: FDA-Public Use
  Company Number: JP-PFIZER INC-2015245300

PATIENT
  Age: 66 Year
  Sex: Female
  Weight: 53 kg

DRUGS (2)
  1. INLYTA [Suspect]
     Active Substance: AXITINIB
     Indication: METASTATIC RENAL CELL CARCINOMA
     Dosage: 10 MG, 2X/DAY
     Route: 048
     Dates: start: 20130228, end: 201305
  2. INLYTA [Suspect]
     Active Substance: AXITINIB
     Dosage: 6 MG, DAILY
     Route: 048
     Dates: start: 201305, end: 20140826

REACTIONS (10)
  - Stomatitis [Unknown]
  - Hypertension [Unknown]
  - Decreased appetite [Recovering/Resolving]
  - Metastatic renal cell carcinoma [Unknown]
  - Pleural effusion [Recovering/Resolving]
  - Ascites [Recovering/Resolving]
  - Malaise [Recovering/Resolving]
  - Palmar-plantar erythrodysaesthesia syndrome [Unknown]
  - Oedema peripheral [Recovering/Resolving]
  - Disease progression [Unknown]

NARRATIVE: CASE EVENT DATE: 201305
